FAERS Safety Report 24910058 (Version 1)
Quarter: 2025Q1

REPORT INFORMATION
  Report Type: Spontaneous
  Country: US (occurrence: US)
  Receive Date: 20250131
  Receipt Date: 20250131
  Transmission Date: 20250408
  Serious: Yes (Death, Other)
  Sender: CHATTEM
  Company Number: US-OPELLA-2025OHG002678

PATIENT
  Age: 75 Year
  Sex: Female

DRUGS (1)
  1. GOLD BOND ORIGINAL STRENGTH [Suspect]
     Active Substance: MENTHOL
     Indication: Product used for unknown indication

REACTIONS (6)
  - Mesothelioma [Fatal]
  - Acute respiratory failure [Fatal]
  - Pulmonary mass [Fatal]
  - Anaemia postoperative [Fatal]
  - Exposure to chemical pollution [Fatal]
  - Occupational exposure to toxic agent [Fatal]

NARRATIVE: CASE EVENT DATE: 20240101
